FAERS Safety Report 8512157-1 (Version None)
Quarter: 2012Q3

REPORT INFORMATION
  Report Type: 
  Country: None (occurrence: None)
  Receive Date: 20120716
  Receipt Date: 20120704
  Transmission Date: 20120928
  Serious: Yes (Hospitalization)
  Sender: FDA-Public Use
  Company Number: CA-GLAXOSMITHKLINE-A0980368B

PATIENT
  Sex: Male
  Weight: 77.4 kg

DRUGS (7)
  1. GSK2110183 [Suspect]
     Indication: CHRONIC LYMPHOCYTIC LEUKAEMIA
     Dosage: 125MG PER DAY
     Route: 048
     Dates: start: 20120424
  2. LIPITOR [Concomitant]
  3. OFATUMUMAB [Suspect]
     Indication: CHRONIC LYMPHOCYTIC LEUKAEMIA
     Dosage: 2000MG WEEKLY
     Route: 042
     Dates: start: 20120504
  4. FLUOROURACIL [Concomitant]
  5. SERTRALINE HYDROCHLORIDE [Concomitant]
  6. PRADAXA [Concomitant]
  7. CARDIZEM [Concomitant]

REACTIONS (1)
  - LETHARGY [None]
